FAERS Safety Report 10167617 (Version 5)
Quarter: 2015Q1

REPORT INFORMATION
  Report Type: Report from Study
  Country: FR (occurrence: FR)
  Receive Date: 20140512
  Receipt Date: 20150313
  Transmission Date: 20150720
  Serious: Yes (Hospitalization, Other)
  Sender: FDA-Public Use
  Company Number: FR-ASTELLAS-2014EU003693

PATIENT
  Age: 2 Year
  Sex: Female
  Weight: 16 kg

DRUGS (12)
  1. BASILIXIMAB [Concomitant]
     Active Substance: BASILIXIMAB
     Indication: PROPHYLAXIS
     Dosage: 10 MG, ONE INJECTION
     Route: 042
     Dates: start: 20130904
  2. TACROLIMUS. [Suspect]
     Active Substance: TACROLIMUS
     Dosage: UNK, TWICE DAILY
     Route: 048
     Dates: end: 20130911
  3. TACROLIMUS. [Suspect]
     Active Substance: TACROLIMUS
     Route: 048
     Dates: start: 20131008
  4. TACROLIMUS. [Suspect]
     Active Substance: TACROLIMUS
     Route: 048
     Dates: start: 20131125
  5. SOLU-MEDROL [Concomitant]
     Active Substance: METHYLPREDNISOLONE SODIUM SUCCINATE
     Indication: PROPHYLAXIS AGAINST TRANSPLANT REJECTION
     Dosage: UNK UNK, ONCE DAILY
     Route: 042
     Dates: start: 20130910, end: 20130916
  6. TACROLIMUS. [Suspect]
     Active Substance: TACROLIMUS
     Route: 048
     Dates: start: 20131029
  7. TACROLIMUS. [Suspect]
     Active Substance: TACROLIMUS
     Route: 048
     Dates: start: 20131112
  8. TACROLIMUS. [Suspect]
     Active Substance: TACROLIMUS
     Route: 048
     Dates: start: 20140203
  9. TACROLIMUS. [Suspect]
     Active Substance: TACROLIMUS
     Indication: PROPHYLAXIS AGAINST TRANSPLANT REJECTION
     Route: 048
     Dates: start: 20130905
  10. BASILIXIMAB [Concomitant]
     Active Substance: BASILIXIMAB
     Dosage: 10 MG, ONE INJECTION
     Route: 042
     Dates: start: 20130908
  11. TACROLIMUS. [Suspect]
     Active Substance: TACROLIMUS
     Route: 048
     Dates: start: 20140307
  12. TACROLIMUS. [Suspect]
     Active Substance: TACROLIMUS
     Dosage: 1 MG MORNING AND NIGHT
     Route: 065
     Dates: start: 20131002

REACTIONS (5)
  - Pleural effusion [Not Recovered/Not Resolved]
  - Respiratory tract infection [Unknown]
  - Transplant rejection [Recovered/Resolved]
  - Neurological decompensation [Recovered/Resolved with Sequelae]
  - Immunosuppressant drug level increased [Recovered/Resolved with Sequelae]

NARRATIVE: CASE EVENT DATE: 20130909
